FAERS Safety Report 8821458 (Version 2)
Quarter: 2012Q4

REPORT INFORMATION
  Report Type: 
  Country: US (occurrence: US)
  Receive Date: 20121002
  Receipt Date: 20121127
  Transmission Date: 20130627
  Serious: Yes (Other)
  Sender: FDA-Public Use
  Company Number: US-B.I. PHARMACEUTICALS,INC./RIDGEFIELD-2012-BP-23508BP

PATIENT
  Age: 71 None
  Sex: Male
  Weight: 100 kg

DRUGS (10)
  1. SPIRIVA [Suspect]
     Indication: CHRONIC OBSTRUCTIVE PULMONARY DISEASE
     Dosage: 18 mcg
     Route: 055
     Dates: start: 2011
  2. COMBIVENT [Suspect]
     Indication: CHRONIC OBSTRUCTIVE PULMONARY DISEASE
     Dosage: 2 puf
     Route: 055
     Dates: start: 1999
  3. VYTORIN [Concomitant]
     Indication: BLOOD CHOLESTEROL INCREASED
     Route: 048
     Dates: start: 2008
  4. ASPIRIN [Concomitant]
     Indication: CEREBROVASCULAR ACCIDENT PROPHYLAXIS
     Dosage: 81 mg
     Route: 048
     Dates: start: 1995
  5. DILTIAZEM HCL [Concomitant]
     Indication: HYPERTENSION
     Dosage: 20 mg
     Route: 048
     Dates: start: 2000
  6. DALIRESP [Concomitant]
     Indication: INCREASED VISCOSITY OF BRONCHIAL SECRETION
     Dosage: 500 mcg
     Route: 048
  7. THEOPHYLLINE [Concomitant]
     Indication: CHRONIC OBSTRUCTIVE PULMONARY DISEASE
     Dosage: 200 mg
     Route: 048
     Dates: start: 2002
  8. POTASSIUM CHLORIDE ER [Concomitant]
     Indication: SUPPLEMENTATION THERAPY
     Dosage: 16 mEq
     Route: 048
     Dates: start: 2002
  9. DIOVAN [Concomitant]
     Indication: HYPERTENSION
     Dosage: 80 mg
     Route: 048
     Dates: start: 2002
  10. LASIX [Concomitant]
     Indication: FLUID RETENTION
     Route: 048
     Dates: start: 2000

REACTIONS (7)
  - Spinal laminectomy [Recovered/Resolved]
  - Dyspnoea [Not Recovered/Not Resolved]
  - Herpes zoster [Recovered/Resolved]
  - Precancerous skin lesion [Recovered/Resolved]
  - Herpes zoster [Recovered/Resolved with Sequelae]
  - Neuralgia [Not Recovered/Not Resolved]
  - Product quality issue [Not Recovered/Not Resolved]
